FAERS Safety Report 22615972 (Version 1)
Quarter: 2023Q2

REPORT INFORMATION
  Report Type: Spontaneous
  Country: CZ (occurrence: None)
  Receive Date: 20230619
  Receipt Date: 20230619
  Transmission Date: 20230722
  Serious: Yes (Death, Other)
  Sender: FDA-Public Use
  Company Number: 2023A140553

PATIENT

DRUGS (1)
  1. IMFINZI [Suspect]
     Active Substance: DURVALUMAB
     Indication: Non-small cell lung cancer stage III
     Route: 042

REACTIONS (6)
  - Pneumonitis [Fatal]
  - Pneumonia [Fatal]
  - Sepsis [Fatal]
  - Malignant neoplasm progression [Unknown]
  - Hypothyroidism [Unknown]
  - Dermatitis [Unknown]
